FAERS Safety Report 23270564 (Version 1)
Quarter: 2023Q4

REPORT INFORMATION
  Report Type: Spontaneous
  Country: CN (occurrence: CN)
  Receive Date: 20231207
  Receipt Date: 20231207
  Transmission Date: 20240110
  Serious: Yes (Other)
  Sender: FDA-Public Use
  Company Number: CN-ALCON LABORATORIES-ALC2023CN005432

PATIENT
  Age: 0 Year
  Sex: Female
  Weight: 8.4 kg

DRUGS (1)
  1. FLUORESCITE [Suspect]
     Active Substance: FLUORESCEIN SODIUM
     Indication: Angiogram retina
     Dosage: 7.700000 MG/KG QD
     Route: 042
     Dates: start: 20231127, end: 20231127

REACTIONS (1)
  - Urticaria [Recovering/Resolving]

NARRATIVE: CASE EVENT DATE: 20231127
